FAERS Safety Report 9380942 (Version 1)
Quarter: 2013Q3

REPORT INFORMATION
  Report Type: Report from Study
  Country: CA (occurrence: CA)
  Receive Date: 20130703
  Receipt Date: 20130703
  Transmission Date: 20140515
  Serious: Yes (Other)
  Sender: FDA-Public Use
  Company Number: CA-ROCHE-1160695

PATIENT
  Age: 55 Year
  Sex: Female
  Weight: 54.4 kg

DRUGS (9)
  1. AVASTIN [Suspect]
     Indication: COLORECTAL CANCER
     Route: 042
     Dates: start: 20110718, end: 20130514
  2. 5-FU [Suspect]
     Indication: COLORECTAL CANCER
     Route: 042
     Dates: start: 201212
  3. OXALIPLATIN [Suspect]
     Indication: COLORECTAL CANCER
     Route: 042
     Dates: start: 201212
  4. FOLINIC ACID [Suspect]
     Indication: COLORECTAL CANCER
     Route: 042
     Dates: start: 201212
  5. ONDANSETRON [Concomitant]
  6. DECADRON [Concomitant]
  7. METOCLOPRAMIDE [Concomitant]
  8. LOVENOX [Concomitant]
  9. NEUPOGEN [Concomitant]

REACTIONS (10)
  - Haemorrhoidal haemorrhage [Recovered/Resolved]
  - Protein urine present [Not Recovered/Not Resolved]
  - Asthenia [Not Recovered/Not Resolved]
  - Epistaxis [Unknown]
  - Back pain [Recovered/Resolved]
  - Diarrhoea [Not Recovered/Not Resolved]
  - Platelet count decreased [Unknown]
  - Decreased appetite [Recovering/Resolving]
  - Hypersensitivity [Recovered/Resolved]
  - Disease progression [Unknown]
